FAERS Safety Report 14937347 (Version 1)
Quarter: 2018Q2

REPORT INFORMATION
  Report Type: Spontaneous
  Country: AU (occurrence: AU)
  Receive Date: 20180525
  Receipt Date: 20180525
  Transmission Date: 20180711
  Serious: Yes (Other)
  Sender: FDA-Public Use
  Company Number: AU-ACCORD-067265

PATIENT
  Age: 24 Year
  Sex: Male

DRUGS (3)
  1. CLOZAPINE. [Suspect]
     Active Substance: CLOZAPINE
     Indication: SCHIZOPHRENIA
     Dosage: ALSO RECEIVED 750 MG HALVED TO 350 MG DAILY
  2. VALPROIC ACID. [Interacting]
     Active Substance: VALPROIC ACID
     Indication: CONVULSION PROPHYLAXIS
     Dosage: INCREASED TO 1500 MG/DAY
  3. HALOPERIDOL. [Interacting]
     Active Substance: HALOPERIDOL
     Indication: SCHIZOPHRENIA

REACTIONS (6)
  - Muscle contractions involuntary [Unknown]
  - Salivary hypersecretion [Unknown]
  - Drug interaction [Unknown]
  - Drug level increased [Recovering/Resolving]
  - Somnolence [Unknown]
  - Dysarthria [Unknown]
